FAERS Safety Report 13031478 (Version 1)
Quarter: 2016Q4

REPORT INFORMATION
  Report Type: Spontaneous
  Country: DE (occurrence: DE)
  Receive Date: 20161215
  Receipt Date: 20161215
  Transmission Date: 20170207
  Serious: Yes (Other)
  Sender: FDA-Public Use
  Company Number: DE-AMGEN-DEUSP2016175780

PATIENT

DRUGS (1)
  1. PROLIA [Suspect]
     Active Substance: DENOSUMAB
     Indication: PRODUCT USED FOR UNKNOWN INDICATION
     Dosage: UNK
     Route: 065
     Dates: start: 201602, end: 2016

REACTIONS (8)
  - Tinnitus [Recovering/Resolving]
  - Dry skin [Not Recovered/Not Resolved]
  - Haemorrhage [Recovering/Resolving]
  - Cystitis noninfective [Recovering/Resolving]
  - Dizziness [Recovering/Resolving]
  - Ear infection [Recovering/Resolving]
  - Arthralgia [Recovering/Resolving]
  - Feeling hot [Recovering/Resolving]

NARRATIVE: CASE EVENT DATE: 2016
